FAERS Safety Report 15628421 (Version 1)
Quarter: 2018Q4

REPORT INFORMATION
  Report Type: Spontaneous
  Country: US (occurrence: US)
  Receive Date: 20181116
  Receipt Date: 20181116
  Transmission Date: 20190205
  Serious: No
  Sender: FDA-Public Use
  Company Number: US-BAYER-2018-213015

PATIENT
  Age: 58 Year
  Sex: Female
  Weight: 64 kg

DRUGS (4)
  1. PROBIOTICA [Concomitant]
     Active Substance: PROBIOTICS NOS
  2. CLARITIN-D 24 HOUR [Suspect]
     Active Substance: LORATADINE\PSEUDOEPHEDRINE SULFATE
     Indication: NASOPHARYNGITIS
  3. MULTIVITAMIN [Concomitant]
     Active Substance: VITAMINS
     Dosage: UNK
  4. CLARITIN-D 24 HOUR [Suspect]
     Active Substance: LORATADINE\PSEUDOEPHEDRINE SULFATE
     Indication: HYPERSENSITIVITY
     Dosage: 1 DF, UNK, IN THE MORNING
     Route: 048

REACTIONS (1)
  - Product use issue [Unknown]
